FAERS Safety Report 9551964 (Version 1)
Quarter: 2013Q3

REPORT INFORMATION
  Report Type: Spontaneous
  Country: US (occurrence: None)
  Receive Date: 20130724
  Receipt Date: 20130724
  Transmission Date: 20140515
  Serious: Yes (Other)
  Sender: FDA-Public Use
  Company Number: PHEH2012US025151

PATIENT
  Age: 74 Year
  Sex: Female

DRUGS (2)
  1. GLEEVEC [Suspect]
  2. LASIX (FUROSEMIDE) [Concomitant]
     Dates: end: 2010

REACTIONS (2)
  - Platelet count increased [None]
  - Drug ineffective [None]
